FAERS Safety Report 7352339-8 (Version None)
Quarter: 2011Q1

REPORT INFORMATION
  Report Type: 
  Country: None (occurrence: None)
  Receive Date: 20110315
  Receipt Date: 20110304
  Transmission Date: 20110831
  Serious: No
  Sender: FDA-Public Use
  Company Number: US-JNJFOC-20101202057

PATIENT
  Sex: Male
  Weight: 86.18 kg

DRUGS (12)
  1. INVEGA SUSTENNA [Suspect]
     Route: 030
  2. INVEGA SUSTENNA [Suspect]
     Indication: SCHIZOPHRENIA
     Route: 030
  3. INVEGA SUSTENNA [Suspect]
     Route: 030
  4. INVEGA SUSTENNA [Suspect]
     Route: 030
  5. INVEGA SUSTENNA [Suspect]
     Route: 030
  6. SEROQUEL [Concomitant]
     Indication: BIPOLAR DISORDER
     Route: 065
  7. INVEGA SUSTENNA [Suspect]
     Route: 030
  8. INVEGA SUSTENNA [Suspect]
     Route: 030
  9. CLONAZEPAM [Concomitant]
     Indication: BIPOLAR DISORDER
     Route: 065
  10. PROZAC [Concomitant]
     Indication: OBSESSIVE-COMPULSIVE DISORDER
     Route: 065
  11. INVEGA SUSTENNA [Suspect]
     Indication: BIPOLAR DISORDER
     Route: 030
  12. PROZAC [Concomitant]
     Indication: ANXIETY
     Route: 065

REACTIONS (2)
  - INJECTION SITE CELLULITIS [None]
  - INJECTION SITE REACTION [None]
